FAERS Safety Report 8279692-5 (Version None)
Quarter: 2012Q2

REPORT INFORMATION
  Report Type: 
  Country: None (occurrence: None)
  Receive Date: 20120412
  Receipt Date: 20110815
  Transmission Date: 20120825
  Serious: No
  Sender: FDA-Public Use
  Company Number: US-ASTRAZENECA-2011SE38141

PATIENT
  Age: 50 Year
  Sex: Male

DRUGS (1)
  1. NEXIUM [Suspect]
     Route: 048

REACTIONS (12)
  - JOINT INJURY [None]
  - TINNITUS [None]
  - VISUAL IMPAIRMENT [None]
  - ABDOMINAL DISTENSION [None]
  - HERNIA [None]
  - DISABILITY [None]
  - EXPIRED DRUG ADMINISTERED [None]
  - SINUSITIS [None]
  - FALL [None]
  - GASTROOESOPHAGEAL REFLUX DISEASE [None]
  - DYSSTASIA [None]
  - DIABETES MELLITUS [None]
